FAERS Safety Report 6839244-8 (Version None)
Quarter: 2010Q3

REPORT INFORMATION
  Report Type: 
  Country: None (occurrence: None)
  Receive Date: 20100714
  Receipt Date: 20100708
  Transmission Date: 20110219
  Serious: Yes (Death)
  Sender: FDA-Public Use
  Company Number: JP-JNJFOC-20100702891

PATIENT
  Age: 83 Year
  Sex: Female

DRUGS (9)
  1. RISPERDAL [Suspect]
     Indication: DELIRIUM
     Route: 048
  2. RISPERDAL [Suspect]
     Route: 048
  3. SERENACE [Suspect]
     Indication: DELIRIUM
     Route: 065
  4. CONTOMIN [Suspect]
     Indication: PRODUCT USED FOR UNKNOWN INDICATION
     Route: 065
  5. SEROQUEL [Suspect]
     Indication: PRODUCT USED FOR UNKNOWN INDICATION
     Route: 048
  6. ZYPREXA [Suspect]
     Indication: PRODUCT USED FOR UNKNOWN INDICATION
     Route: 065
  7. LENDORMIN [Suspect]
     Indication: PRODUCT USED FOR UNKNOWN INDICATION
     Route: 048
  8. GRAMALIL [Suspect]
     Indication: PRODUCT USED FOR UNKNOWN INDICATION
     Route: 048
  9. LORAZEPAM [Suspect]
     Indication: PRODUCT USED FOR UNKNOWN INDICATION
     Route: 048

REACTIONS (5)
  - AKATHISIA [None]
  - DEATH [None]
  - DYSPHAGIA [None]
  - ILEUS PARALYTIC [None]
  - MENTAL DISORDER [None]
